FAERS Safety Report 6050418-9 (Version None)
Quarter: 2009Q1

REPORT INFORMATION
  Report Type: 
  Country: None (occurrence: None)
  Receive Date: 20090126
  Receipt Date: 20090119
  Transmission Date: 20090719
  Serious: Yes (Other)
  Sender: FDA-Public Use
  Company Number: US-BAYER-200911387NA

PATIENT
  Age: 74 Year

DRUGS (9)
  1. FLUDARA [Suspect]
     Indication: NON-HODGKIN'S LYMPHOMA
     Dates: start: 20081001, end: 20081001
  2. FLUDARA [Suspect]
     Dates: start: 20081101, end: 20081101
  3. FLUDARA [Suspect]
     Dates: start: 20081201, end: 20081201
  4. RITUXAN [Concomitant]
     Dates: start: 20081001, end: 20081001
  5. RITUXAN [Concomitant]
     Dates: start: 20081101, end: 20081101
  6. RITUXAN [Concomitant]
     Dates: start: 20081201, end: 20081201
  7. CYCLOPHOSPHAMIDE [Concomitant]
     Dates: start: 20081101, end: 20081101
  8. CYCLOPHOSPHAMIDE [Concomitant]
     Dates: start: 20081201, end: 20081201
  9. CYCLOPHOSPHAMIDE [Concomitant]
     Dates: start: 20081001, end: 20081001

REACTIONS (1)
  - ASCITES [None]
